FAERS Safety Report 22386299 (Version 1)
Quarter: 2023Q2

REPORT INFORMATION
  Report Type: Spontaneous
  Country: JP (occurrence: JP)
  Receive Date: 20230530
  Receipt Date: 20230530
  Transmission Date: 20230721
  Serious: Yes (Death)
  Sender: FDA-Public Use
  Company Number: JP-MTPC-MTPC2023-0013583

PATIENT
  Age: 86 Year
  Sex: Female

DRUGS (8)
  1. EDARAVONE [Suspect]
     Active Substance: EDARAVONE
     Indication: Carotid artery occlusion
     Route: 065
  2. EDARAVONE [Suspect]
     Active Substance: EDARAVONE
     Indication: Cerebral infarction
  3. GLYCERIN [Concomitant]
     Active Substance: GLYCERIN
     Indication: Carotid artery occlusion
     Route: 065
  4. GLYCERIN [Concomitant]
     Active Substance: GLYCERIN
     Indication: Cerebral infarction
  5. Azunol [Concomitant]
     Indication: Mouth haemorrhage
     Route: 049
  6. DEXAMETHASONE [Concomitant]
     Active Substance: DEXAMETHASONE
     Indication: Mouth haemorrhage
     Route: 049
  7. BECLOMETHASONE DIPROPIONATE [Concomitant]
     Active Substance: BECLOMETHASONE DIPROPIONATE
     Indication: Mouth haemorrhage
     Route: 049
  8. XARELTO [Concomitant]
     Active Substance: RIVAROXABAN
     Indication: Mouth haemorrhage
     Route: 065

REACTIONS (1)
  - General physical health deterioration [Fatal]
